FAERS Safety Report 6258843-8 (Version None)
Quarter: 2009Q3

REPORT INFORMATION
  Report Type: 
  Country: None (occurrence: None)
  Receive Date: 20090707
  Receipt Date: 20090702
  Transmission Date: 20100115
  Serious: No
  Sender: FDA-Public Use
  Company Number: US-B.I. PHARMACEUTICALS,INC./RIDGEFIELD-2009-BP-07985BP

PATIENT
  Sex: Male

DRUGS (13)
  1. FLOMAX [Suspect]
     Indication: PROSTATOMEGALY
     Dosage: 0.4 MG
     Route: 048
     Dates: start: 20080101
  2. FLOMAX [Suspect]
     Indication: PROPHYLAXIS
  3. LEVOTHYROXINE [Concomitant]
     Indication: HYPOTHYROIDISM
  4. METOPROLOL [Concomitant]
     Indication: HYPERTENSION
  5. LIPITOR [Concomitant]
     Indication: BLOOD CHOLESTEROL INCREASED
  6. MULTI-VITAMIN [Concomitant]
     Indication: PROPHYLAXIS
  7. ASCORBIC ACID [Concomitant]
     Indication: PROPHYLAXIS
  8. VITAMIN E [Concomitant]
     Indication: PROPHYLAXIS
  9. VITAMIN B COMPLEX CAP [Concomitant]
     Indication: PROPHYLAXIS
  10. VITAMIN B-12 [Concomitant]
     Indication: PROPHYLAXIS
  11. CPQ 10 [Concomitant]
     Indication: PROPHYLAXIS
  12. LOVAZA [Concomitant]
     Indication: PROPHYLAXIS
  13. LEXAPRO [Concomitant]
     Indication: STRESS

REACTIONS (3)
  - COUGH [None]
  - RHINORRHOEA [None]
  - SINUS DISORDER [None]
